FAERS Safety Report 7439410-7 (Version None)
Quarter: 2011Q2

REPORT INFORMATION
  Report Type: 
  Country: None (occurrence: None)
  Receive Date: 20110427
  Receipt Date: 20110425
  Transmission Date: 20111010
  Serious: Yes (Death, Other)
  Sender: FDA-Public Use
  Company Number: JP-BAYER-2011-035068

PATIENT
  Age: 81 Year
  Sex: Male

DRUGS (2)
  1. SUMIFERON [Concomitant]
     Dosage: UNK
     Route: 065
  2. NEXAVAR [Suspect]
     Indication: METASTATIC RENAL CELL CARCINOMA
     Dosage: 400 MG, BID
     Route: 048
     Dates: start: 20110407

REACTIONS (2)
  - INTERSTITIAL LUNG DISEASE [None]
  - ABDOMINAL DISTENSION [None]
